FAERS Safety Report 21259951 (Version 1)
Quarter: 2022Q3

REPORT INFORMATION
  Report Type: Spontaneous
  Country: US (occurrence: None)
  Receive Date: 20220825
  Receipt Date: 20220825
  Transmission Date: 20221027
  Serious: No
  Sender: FDA-Public Use
  Company Number: None

PATIENT
  Sex: 0

DRUGS (1)
  1. BENZOCAINE [Suspect]
     Active Substance: BENZOCAINE

REACTIONS (3)
  - Dizziness [None]
  - Headache [None]
  - Methaemoglobinaemia [None]

NARRATIVE: CASE EVENT DATE: 20220824
